FAERS Safety Report 25122589 (Version 1)
Quarter: 2025Q1

REPORT INFORMATION
  Report Type: Spontaneous
  Country: US (occurrence: US)
  Receive Date: 20250326
  Receipt Date: 20250326
  Transmission Date: 20250408
  Serious: No
  Sender: BIOVITRUM
  Company Number: US-BIOVITRUM-2025-US-004062

PATIENT
  Age: 69 Year
  Sex: Male

DRUGS (1)
  1. VONJO [Suspect]
     Active Substance: PACRITINIB
     Indication: Anaemia vitamin B12 deficiency
     Route: 048
     Dates: start: 20241126

REACTIONS (1)
  - Orthostatic hypotension [Unknown]
